FAERS Safety Report 21454456 (Version 1)
Quarter: 2022Q4

REPORT INFORMATION
  Report Type: Spontaneous
  Country: US (occurrence: None)
  Receive Date: 20221013
  Receipt Date: 20221013
  Transmission Date: 20230112
  Serious: No
  Sender: FDA-Public Use
  Company Number: None

PATIENT
  Age: 31 Year
  Sex: Female

DRUGS (1)
  1. OPSUMIT [Suspect]
     Active Substance: MACITENTAN
     Dosage: FREQUENCY : DAILY;?
     Route: 048
     Dates: start: 20190527

REACTIONS (3)
  - Dyspnoea [None]
  - Syncope [None]
  - Hypokalaemia [None]

NARRATIVE: CASE EVENT DATE: 20221011
